FAERS Safety Report 16133626 (Version 1)
Quarter: 2019Q1

REPORT INFORMATION
  Report Type: Spontaneous
  Country: GB (occurrence: GB)
  Receive Date: 20190329
  Receipt Date: 20190329
  Transmission Date: 20190418
  Serious: Yes (Hospitalization)
  Sender: FDA-Public Use
  Company Number: GB-ACCORD-115730

PATIENT
  Age: 56 Year
  Sex: Male
  Weight: 85 kg

DRUGS (4)
  1. RAMIPRIL. [Concomitant]
     Active Substance: RAMIPRIL
  2. SERTRALINE [Suspect]
     Active Substance: SERTRALINE HYDROCHLORIDE
     Indication: DEPRESSION
     Dosage: 25MG-200MG
     Route: 048
     Dates: start: 20130114, end: 20180510
  3. ATORVASTATIN [Concomitant]
     Active Substance: ATORVASTATIN
  4. EDOXABAN [Concomitant]
     Active Substance: EDOXABAN TOSYLATE

REACTIONS (2)
  - Transient ischaemic attack [Recovered/Resolved with Sequelae]
  - Abnormal weight gain [Recovered/Resolved]
